FAERS Safety Report 7497406-3 (Version None)
Quarter: 2011Q2

REPORT INFORMATION
  Report Type: 
  Country: None (occurrence: None)
  Receive Date: 20110516
  Receipt Date: 20110509
  Transmission Date: 20111010
  Serious: Yes (Other)
  Sender: FDA-Public Use
  Company Number: 2011SP021239

PATIENT
  Sex: Female

DRUGS (1)
  1. NEXPLANON (ETONOGESTREL /01502301/) [Suspect]
     Indication: PRODUCT USED FOR UNKNOWN INDICATION
     Dates: start: 20110325

REACTIONS (1)
  - ANGIOEDEMA [None]
